FAERS Safety Report 10361867 (Version 1)
Quarter: 2014Q1

REPORT INFORMATION
  Report Type: Spontaneous
  Country: US (occurrence: None)
  Receive Date: 20140306
  Receipt Date: 20140306
  Transmission Date: 20141002
  Serious: Yes (Other)
  Sender: FDA-Public Use
  Company Number: 163-21880-13074822

PATIENT
  Age: 67 Year
  Sex: Male
  Weight: 68.9 kg

DRUGS (8)
  1. REVLIMID [Suspect]
     Indication: PLASMA CELL MYELOMA
     Route: 048
     Dates: start: 201306
  2. OXYCODONE ER (OXYCODONE) (UNKNOWN) [Concomitant]
  3. FLUCONAZOLE (FLUCONAZOLE) (UNKNOWN) [Concomitant]
  4. WARFARIN (WARFARIN) (UNKNOWN) [Concomitant]
  5. OXYCODONE/APAP (OXYCODONE/APAP) (UNKNOWN) [Concomitant]
  6. DEXAMETHASONE (DEXAMETHASONE) (UNKNOWN) [Concomitant]
  7. OXYCODONE (OXYCODONE) (UNKNOWN) (OXYCODONE) [Concomitant]
  8. LIDOCAINE/PRILOCAINE (EMLA) (CREAM) [Concomitant]

REACTIONS (1)
  - Pancytopenia [None]
